FAERS Safety Report 4919977-0 (Version None)
Quarter: 2006Q1

REPORT INFORMATION
  Report Type: 
  Country: None (occurrence: None)
  Receive Date: 20060216
  Receipt Date: 20060208
  Transmission Date: 20060701
  Serious: No
  Sender: FDA-Public Use
  Company Number: 06H-087-0304930-00

PATIENT
  Age: 15 Year
  Sex: Male

DRUGS (1)
  1. MANNITOL [Suspect]
     Dosage: INFUSION

REACTIONS (2)
  - HYPERKALAEMIA [None]
  - METABOLIC ACIDOSIS [None]
